FAERS Safety Report 5331391-5 (Version None)
Quarter: 2007Q2

REPORT INFORMATION
  Report Type: 
  Country: None (occurrence: None)
  Receive Date: 20070522
  Receipt Date: 20070513
  Transmission Date: 20071010
  Serious: Yes (Other)
  Sender: FDA-Public Use
  Company Number: US-SANOFI-SYNTHELABO-A03200702118

PATIENT
  Sex: Female
  Weight: 72.6 kg

DRUGS (2)
  1. AMBIEN [Suspect]
     Indication: INSOMNIA
     Route: 048
     Dates: start: 20020402, end: 20060602
  2. ALCOHOL [Concomitant]
     Dosage: UNK
     Route: 048

REACTIONS (6)
  - AMNESIA [None]
  - DRUG INEFFECTIVE [None]
  - EATING DISORDER [None]
  - IMPAIRED DRIVING ABILITY [None]
  - ROAD TRAFFIC ACCIDENT [None]
  - SLEEP WALKING [None]
